FAERS Safety Report 12613246 (Version 3)
Quarter: 2016Q3

REPORT INFORMATION
  Report Type: Spontaneous
  Country: IT (occurrence: IT)
  Receive Date: 20160802
  Receipt Date: 20160913
  Transmission Date: 20161109
  Serious: Yes (Hospitalization)
  Sender: FDA-Public Use
  Company Number: IT-ACCORD-042836

PATIENT
  Age: 30 Year
  Sex: Female

DRUGS (10)
  1. EN BGP PRODUCTS [Concomitant]
     Indication: ANXIETY
     Dosage: STRENGTH: 1 MG/ML
     Route: 048
  2. AKINETON LABORATORIO FARMACEUTICO SIT SPECIALITA IGIENICO TERAPEUTICHE [Concomitant]
     Indication: PARKINSON^S DISEASE
     Dosage: STRENGTH: 2 MG
     Route: 048
  3. SEROQUEL ASTRAZENECA [Concomitant]
     Indication: SCHIZOPHRENIA
     Dosage: STRENGTH: 300 MG
     Route: 048
  4. ENTUMIN LABORATORIES JUVISE PHARMACEUTICALS [Concomitant]
     Indication: ACUTE PSYCHOSIS
     Dosage: STRENGTH: 100 MG/ML
     Route: 048
  5. CYMBALTA [Concomitant]
     Active Substance: DULOXETINE HYDROCHLORIDE
     Indication: DEPRESSION
     Dosage: STRENGTH: 60 MG
     Route: 048
  6. ENDOXAN BAXTER [Suspect]
     Active Substance: CYCLOPHOSPHAMIDE
     Indication: BREAST CANCER
     Dosage: STRENGTH: 1 G
     Route: 042
     Dates: start: 20160713, end: 20160713
  7. EUTIROX MERCK SERONO [Concomitant]
     Indication: HYPOTHYROIDISM
     Dosage: STRENGTH: 175 MCG
     Route: 048
  8. FLUOROURACIL ACCORD [Suspect]
     Active Substance: FLUOROURACIL
     Indication: BREAST CANCER
     Dosage: STRENGTH: 50 MG/ML
     Route: 042
     Dates: start: 20160713, end: 20160713
  9. METHOTREXATE PFIZER [Suspect]
     Active Substance: METHOTREXATE
     Indication: BREAST CANCER
     Dosage: STRENGTH: 1 G
     Route: 042
     Dates: start: 20160713, end: 20160713
  10. CONGESCOR DAIICHI SANKYO [Concomitant]
     Indication: HYPERTENSION
     Dosage: STRENGTH: 1.25 MG
     Route: 048

REACTIONS (3)
  - Troponin increased [Recovered/Resolved]
  - Chest pain [Recovered/Resolved]
  - Cardiotoxicity [Recovered/Resolved]

NARRATIVE: CASE EVENT DATE: 20160715
